FAERS Safety Report 9642801 (Version 2)
Quarter: 2013Q4

REPORT INFORMATION
  Report Type: Report from Study
  Country: US (occurrence: US)
  Receive Date: 20131024
  Receipt Date: 20131024
  Transmission Date: 20140711
  Serious: Yes (Other)
  Sender: FDA-Public Use
  Company Number: US-SA-2013SA102331

PATIENT
  Sex: Male

DRUGS (1)
  1. AUBAGIO [Suspect]
     Route: 048
     Dates: start: 20131001

REACTIONS (3)
  - Panic attack [Unknown]
  - Anxiety [Unknown]
  - Dizziness [Unknown]
